FAERS Safety Report 8617440-7 (Version None)
Quarter: 2012Q3

REPORT INFORMATION
  Report Type: 
  Country: None (occurrence: None)
  Receive Date: 20120824
  Receipt Date: 20120809
  Transmission Date: 20120928
  Serious: Yes (Hospitalization)
  Sender: FDA-Public Use
  Company Number: IT-MERCK-1208ITA004353

PATIENT

DRUGS (13)
  1. CLARITHROMYCIN [Concomitant]
     Dosage: 2 DF, UNK
     Route: 048
     Dates: start: 20120621
  2. APIDRA [Concomitant]
     Dosage: 18 DF, UNK
     Route: 058
     Dates: start: 20120620
  3. DEURSIL [Concomitant]
     Dosage: 2 DF, UNK
     Route: 048
     Dates: start: 20120628
  4. TIENAM 500 MG+500 MG POLVERE PER SOLUZIONE PER INFUSIONE [Suspect]
     Indication: INFECTION
     Dosage: 1000MG/1000MG, QD
     Route: 042
     Dates: start: 20120625, end: 20120703
  5. CALCITRIOL [Concomitant]
     Dosage: 2 DF, UNK
     Route: 048
     Dates: start: 20120702
  6. ALBITAL [Concomitant]
     Dosage: 3 DF, UNK
     Route: 042
     Dates: start: 20120625
  7. BECOZYM [Concomitant]
     Dosage: 1 DF, UNK
     Route: 048
     Dates: start: 20120703
  8. LANTUS [Concomitant]
     Dosage: 10 DF, UNK
     Route: 058
     Dates: start: 20120625
  9. KONAKION [Concomitant]
     Dosage: 4 DF, UNK
     Dates: start: 20120625
  10. LEDERFOLIN (LEUCOVORIN CALCIUM) [Concomitant]
     Dosage: 1 DF, UNK
     Route: 048
     Dates: start: 20120703
  11. BUPRENORPHINE [Concomitant]
     Dosage: 1 DF, UNK
     Route: 062
  12. RIFAXIMIN [Concomitant]
     Dosage: 6 DF, UNK
     Route: 048
     Dates: start: 20120702
  13. ARANESP [Concomitant]
     Dosage: 1 DF, UNK
     Route: 058
     Dates: start: 20120626, end: 20120626

REACTIONS (2)
  - BRADYPHRENIA [None]
  - BRADYKINESIA [None]
